FAERS Safety Report 4687126-2 (Version None)
Quarter: 2005Q2

REPORT INFORMATION
  Report Type: 
  Country: None (occurrence: None)
  Receive Date: 20050607
  Receipt Date: 20050520
  Transmission Date: 20051028
  Serious: Yes (Hospitalization, Other)
  Sender: FDA-Public Use
  Company Number: USA050394470

PATIENT
  Age: 70 Year
  Sex: Female
  Weight: 105 kg

DRUGS (8)
  1. HUMALOG [Suspect]
     Indication: DIABETES MELLITUS
     Dosage: 42 U DAY
  2. HUMULIN N [Suspect]
     Indication: DIABETES MELLITUS
     Dosage: 35 U/1AT BEDTIME
  3. HUMULIN 70/30 [Suspect]
     Indication: DIABETES MELLITUS
  4. IBUPROFEN [Concomitant]
  5. BEXTRA [Concomitant]
  6. CELEBREX [Concomitant]
  7. NAPROSYN (NAPROXEN MEPHA) [Concomitant]
  8. WELCHOL [Concomitant]

REACTIONS (11)
  - BLOOD CHOLESTEROL INCREASED [None]
  - BODY HEIGHT DECREASED [None]
  - CATARACT [None]
  - CHOKING [None]
  - CONDITION AGGRAVATED [None]
  - GLAUCOMA [None]
  - MEMORY IMPAIRMENT [None]
  - NON-HODGKIN'S LYMPHOMA [None]
  - OSTEOARTHRITIS [None]
  - PHARMACEUTICAL PRODUCT COMPLAINT [None]
  - POST PROCEDURAL COMPLICATION [None]
